FAERS Safety Report 14191173 (Version 2)
Quarter: 2017Q4

REPORT INFORMATION
  Report Type: Spontaneous
  Country: US (occurrence: US)
  Receive Date: 20171115
  Receipt Date: 20171206
  Transmission Date: 20180321
  Serious: No
  Sender: FDA-Public Use
  Company Number: US-LEXICON PHARMACEUTICALS, INC-17-1606-01033

PATIENT
  Sex: Female

DRUGS (11)
  1. METOPROLOL. [Concomitant]
     Active Substance: METOPROLOL
  2. OCTREOTIDE. [Concomitant]
     Active Substance: OCTREOTIDE
  3. ERGOCALCIFEROL. [Concomitant]
     Active Substance: ERGOCALCIFEROL
  4. TELOTRISTAT ETHYL [Suspect]
     Active Substance: TELOTRISTAT ETHYL
     Indication: CARCINOID SYNDROME
     Route: 048
     Dates: start: 20170927, end: 20171005
  5. SYNTHROID [Concomitant]
     Active Substance: LEVOTHYROXINE SODIUM
  6. AMLODIPINE BESY BENAZEPRIL [Concomitant]
  7. GABAPENTIN. [Concomitant]
     Active Substance: GABAPENTIN
  8. CLONAZEPAM. [Concomitant]
     Active Substance: CLONAZEPAM
  9. LOVAZA [Concomitant]
     Active Substance: OMEGA-3-ACID ETHYL ESTERS
  10. TACROLIMUS. [Concomitant]
     Active Substance: TACROLIMUS
  11. ACTIGALL [Concomitant]
     Active Substance: URSODIOL

REACTIONS (7)
  - Blood pressure increased [Unknown]
  - Adverse drug reaction [Unknown]
  - Neck pain [Unknown]
  - Inhibitory drug interaction [Unknown]
  - Diarrhoea [Unknown]
  - Headache [Unknown]
  - Joint swelling [Unknown]

NARRATIVE: CASE EVENT DATE: 2017
